FAERS Safety Report 13251112 (Version 2)
Quarter: 2017Q2

REPORT INFORMATION
  Report Type: Spontaneous
  Country: US (occurrence: US)
  Receive Date: 20170220
  Receipt Date: 20170409
  Transmission Date: 20170830
  Serious: No
  Sender: FDA-Public Use
  Company Number: US-TEVA-727486ACC

PATIENT
  Age: 66 Year
  Sex: Female

DRUGS (13)
  1. DULOXETINE. [Concomitant]
     Active Substance: DULOXETINE
     Dosage: 30 MG
  2. BACLOFEN. [Concomitant]
     Active Substance: BACLOFEN
     Dosage: 10 MG
  3. LEVOTHYROXINE. [Concomitant]
     Active Substance: LEVOTHYROXINE
     Dosage: 88 MCG
  4. SYNTHROID [Concomitant]
     Active Substance: LEVOTHYROXINE SODIUM
     Dosage: 88 MCG
  5. DULOXETINE. [Concomitant]
     Active Substance: DULOXETINE
     Dosage: 40 MG
  6. SUMATRIPTAN. [Concomitant]
     Active Substance: SUMATRIPTAN
     Dosage: SPRAY 20 MG/ACT
  7. METHYLPHENIDATE. [Concomitant]
     Active Substance: METHYLPHENIDATE
     Dosage: EXTENDED RELEASE, 40 MG
  8. AMITRIPTYLINE [Concomitant]
     Active Substance: AMITRIPTYLINE
     Dosage: 25 MG
  9. COPAXONE [Suspect]
     Active Substance: GLATIRAMER ACETATE
     Indication: MULTIPLE SCLEROSIS
     Dosage: PRE FILLED SYRINGE
     Route: 058
  10. TOPIRAMATE. [Concomitant]
     Active Substance: TOPIRAMATE
     Dosage: 50 MG
  11. METHYLPHENIDATE. [Concomitant]
     Active Substance: METHYLPHENIDATE
     Dosage: 10 MG
  12. LYRICA [Concomitant]
     Active Substance: PREGABALIN
     Dosage: 100 MG
  13. BUTORPHANOL [Concomitant]
     Active Substance: BUTORPHANOL
     Dosage: SOLUTION, 10 MG/ML

REACTIONS (3)
  - Malaise [Recovering/Resolving]
  - Influenza [Recovered/Resolved]
  - Gastrointestinal disorder [Recovering/Resolving]

NARRATIVE: CASE EVENT DATE: 20161205
